FAERS Safety Report 9143633 (Version 1)
Quarter: 2013Q1

REPORT INFORMATION
  Report Type: Report from Study
  Country: JP (occurrence: JP)
  Receive Date: 20130306
  Receipt Date: 20130306
  Transmission Date: 20140127
  Serious: Yes (Hospitalization)
  Sender: FDA-Public Use
  Company Number: JP-ELI_LILLY_AND_COMPANY-JP201302008423

PATIENT
  Age: 71 Year
  Sex: Male

DRUGS (8)
  1. GEMCITABINE HYDROCHLORIDE [Suspect]
     Indication: PANCREATIC CARCINOMA
     Dosage: 1000 MG/M2, UNK
     Route: 042
     Dates: start: 20120117, end: 20120124
  2. GEMCITABINE HYDROCHLORIDE [Suspect]
     Dosage: 750 MG/M2, UNK
     Route: 042
     Dates: start: 20120131, end: 20120131
  3. GEMCITABINE HYDROCHLORIDE [Suspect]
     Dosage: 1000 MG/M2, UNK
     Route: 042
     Dates: start: 20120214, end: 20120313
  4. OTHER PHARMA COMPANY INV DRUG [Suspect]
     Indication: PANCREATIC CARCINOMA
     Dosage: 2 MG, QD
     Dates: start: 20120117, end: 20120213
  5. OTHER PHARMA COMPANY INV DRUG [Suspect]
     Dosage: 2 MG, QD
     Dates: start: 20120222, end: 20120313
  6. ASPIRIN [Concomitant]
  7. TS 1 [Concomitant]
  8. PREDNISOLONE [Concomitant]

REACTIONS (2)
  - Pulmonary alveolar haemorrhage [Recovered/Resolved]
  - Interstitial lung disease [Recovering/Resolving]
